FAERS Safety Report 7406887-2 (Version None)
Quarter: 2011Q2

REPORT INFORMATION
  Report Type: 
  Country: None (occurrence: None)
  Receive Date: 20110411
  Receipt Date: 20110406
  Transmission Date: 20111010
  Serious: Yes (Hospitalization)
  Sender: FDA-Public Use
  Company Number: JP-PFIZER INC-2011068653

PATIENT
  Age: 76 Year
  Sex: Female
  Weight: 42 kg

DRUGS (8)
  1. ZOSYN [Suspect]
     Indication: OSTEOMYELITIS
     Dosage: 2.25 G, 4X/DAY
     Route: 041
     Dates: start: 20110316, end: 20110318
  2. LANSOPRAZOLE [Concomitant]
     Indication: GASTRITIS
     Dosage: 15 MG, DAILY
     Route: 048
     Dates: end: 20110318
  3. PRORENAL [Concomitant]
     Indication: COMPRESSION FRACTURE
     Dosage: 15 MICGROGRAM, DAILY
     Route: 048
     Dates: end: 20110318
  4. ZOSYN [Suspect]
     Indication: SPONDYLITIS
  5. OLMETEC [Concomitant]
     Indication: HYPERTENSION
     Dosage: 20 MG, DAILY
     Route: 048
     Dates: end: 20110318
  6. AMLODIN [Concomitant]
     Indication: HYPERTENSION
     Dosage: 2.5 MG, DAILY
     Route: 048
     Dates: end: 20110318
  7. FLUITRAN [Concomitant]
     Indication: HYPERTENSION
     Dosage: 2 MG, DAILY
     Route: 048
     Dates: end: 20110318
  8. LOXOPROFEN SODIUM [Concomitant]
     Indication: SPONDYLITIS
     Dosage: 180 MG, DAILY
     Route: 048
     Dates: start: 20110209, end: 20110318

REACTIONS (2)
  - MYOCLONUS [None]
  - ENCEPHALOPATHY [None]
